FAERS Safety Report 10182648 (Version 1)
Quarter: 2014Q2

REPORT INFORMATION
  Report Type: Spontaneous
  Country: US (occurrence: None)
  Receive Date: 20140519
  Receipt Date: 20140519
  Transmission Date: 20141212
  Serious: No
  Sender: FDA-Public Use
  Company Number: None

PATIENT
  Age: 39 Year
  Sex: Female

DRUGS (11)
  1. FORTEO [Suspect]
     Indication: PRODUCT USED FOR UNKNOWN INDICATION
     Route: 058
     Dates: start: 20140423
  2. ESTRADIOL [Concomitant]
  3. VOLTAREN GEL [Concomitant]
  4. VICODIN [Concomitant]
  5. XANAX [Concomitant]
  6. BACLOFEN [Concomitant]
  7. NUVIGIL [Concomitant]
  8. CALCIUM [Concomitant]
  9. VITAMIN D [Concomitant]
  10. MOTRIN [Concomitant]
  11. LIDODERM PATCH [Concomitant]

REACTIONS (2)
  - Palpitations [None]
  - Breast discharge [None]
